FAERS Safety Report 21556697 (Version 2)
Quarter: 2022Q4

REPORT INFORMATION
  Report Type: Spontaneous
  Country: US (occurrence: US)
  Receive Date: 20221104
  Receipt Date: 20221108
  Transmission Date: 20230113
  Serious: No
  Sender: FDA-Public Use
  Company Number: US-PFIZER INC-202201277005

PATIENT
  Sex: Male

DRUGS (1)
  1. PAXLOVID [Suspect]
     Active Substance: NIRMATRELVIR\RITONAVIR
     Indication: COVID-19 treatment
     Dosage: 3 DF (3 OF THESE PILLS)

REACTIONS (4)
  - Dry mouth [Unknown]
  - Dysgeusia [Unknown]
  - Feeling abnormal [Unknown]
  - Dry throat [Unknown]
